FAERS Safety Report 7432294-2 (Version None)
Quarter: 2011Q2

REPORT INFORMATION
  Report Type: 
  Country: None (occurrence: None)
  Receive Date: 20110414
  Receipt Date: 20110329
  Transmission Date: 20111010
  Serious: Yes (Disabling)
  Sender: FDA-Public Use
  Company Number: 2011AP000608

PATIENT
  Age: 76 Year
  Sex: Female

DRUGS (11)
  1. COLECALCIFEROL (COLECALCIFEROL) [Concomitant]
  2. NITRAZEPAM [Concomitant]
  3. BISACODYL (BISACODYL) [Concomitant]
  4. SENNA ALEXANDRINA (SENNA ALEXANDRINA) [Concomitant]
  5. CALCIUM CARBONATE [Concomitant]
  6. ACETYLSALICYLIC ACID (ACETYLSALICYLIC ACID) [Concomitant]
  7. ATORVASTATIN (ATORVASTATIN) [Concomitant]
  8. CODEINE PHOSPHATE (CODEINE PHOSPHATE) [Concomitant]
  9. ALENDRONATE SODIUM [Suspect]
     Indication: OSTEOPOROSIS
     Dosage: 70 MG;PO;QW
     Route: 048
     Dates: start: 20100301
  10. ACETAMINOPHEN [Concomitant]
  11. OMEPRAZOLE [Concomitant]

REACTIONS (6)
  - MOBILITY DECREASED [None]
  - MEDICATION ERROR [None]
  - WRONG TECHNIQUE IN DRUG USAGE PROCESS [None]
  - GAIT DISTURBANCE [None]
  - ERYTHEMA [None]
  - OEDEMA PERIPHERAL [None]
